FAERS Safety Report 11512807 (Version 1)
Quarter: 2015Q3

REPORT INFORMATION
  Report Type: Spontaneous
  Country: US (occurrence: US)
  Receive Date: 20150903
  Receipt Date: 20150903
  Transmission Date: 20151125
  Serious: No
  Sender: FDA-Public Use
  Company Number: US-ELI_LILLY_AND_COMPANY-US201003008391

PATIENT
  Sex: Female

DRUGS (4)
  1. LANTUS [Concomitant]
     Active Substance: INSULIN GLARGINE
  2. NOVOLOG [Concomitant]
     Active Substance: INSULIN ASPART
     Dosage: 30 U, 3/D
  3. HUMALOG MIX75/25 [Suspect]
     Active Substance: INSULIN LISPRO
  4. HUMALOG [Suspect]
     Active Substance: INSULIN LISPRO
     Indication: DIABETES MELLITUS
     Dosage: 30 U, 3/D

REACTIONS (2)
  - Drug dispensing error [Recovered/Resolved]
  - Wrong drug administered [Recovered/Resolved]
